FAERS Safety Report 21745896 (Version 1)
Quarter: 2022Q4

REPORT INFORMATION
  Report Type: Spontaneous
  Country: US (occurrence: US)
  Receive Date: 20221219
  Receipt Date: 20221219
  Transmission Date: 20230113
  Serious: No
  Sender: FDA-Public Use
  Company Number: US-HETERO-HET2022US03154

PATIENT
  Age: 71 Year
  Sex: Female
  Weight: 49 kg

DRUGS (2)
  1. MONTELUKAST [Suspect]
     Active Substance: MONTELUKAST SODIUM
     Indication: Hypersensitivity
     Dosage: 5 MG, O.D., ONCE IN A DAY AFTER HER DINNER
     Route: 048
     Dates: start: 20220920
  2. GABAPENTIN [Concomitant]
     Active Substance: GABAPENTIN
     Indication: Product used for unknown indication
     Dosage: 100 MG, O.D., ONCE IN A DAY
     Route: 065

REACTIONS (3)
  - Product use complaint [Unknown]
  - Product colour issue [Unknown]
  - Headache [Recovering/Resolving]

NARRATIVE: CASE EVENT DATE: 20220920
